FAERS Safety Report 21575456 (Version 1)
Quarter: 2022Q4

REPORT INFORMATION
  Report Type: Report from Study
  Country: US (occurrence: None)
  Receive Date: 20221110
  Receipt Date: 20221110
  Transmission Date: 20230113
  Serious: Yes (Other)
  Sender: FDA-Public Use
  Company Number: US-ROCHE-3213678

PATIENT
  Age: 56 Year
  Sex: Female

DRUGS (3)
  1. BEVACIZUMAB [Suspect]
     Active Substance: BEVACIZUMAB
     Indication: Ovarian epithelial cancer
     Dosage: OVER 30-90 MINUTES ON DAY1 OF CYCLES 2+?ON 24/JUN/2011 PRIOR TO EVENT ONSET
     Route: 042
     Dates: start: 20110603, end: 20110701
  2. PACLITAXEL [Suspect]
     Active Substance: PACLITAXEL
     Indication: Ovarian epithelial cancer
     Dosage: CYCLE= 21DAYS OVER 1HR ON DAYS1,8+15(CYCLES1- 6)
     Route: 042
     Dates: start: 20110603, end: 20110701
  3. CARBOPLATIN [Suspect]
     Active Substance: CARBOPLATIN
     Indication: Ovarian epithelial cancer
     Dosage: AUC=6 ON DAY1 (CYCLES1-6)
     Route: 042
     Dates: start: 20110603, end: 20110701

REACTIONS (2)
  - White blood cell count decreased [Unknown]
  - Wound infection [Unknown]

NARRATIVE: CASE EVENT DATE: 20110706
